FAERS Safety Report 6635934-0 (Version None)
Quarter: 2010Q1

REPORT INFORMATION
  Report Type: 
  Country: None (occurrence: None)
  Receive Date: 20100225
  Receipt Date: 20090522
  Transmission Date: 20100710
  Serious: Yes (Other)
  Sender: FDA-Public Use
  Company Number: US-JNJFOC-20090506247

PATIENT
  Sex: Female

DRUGS (2)
  1. MOTRIN [Suspect]
     Indication: DRUG USE FOR UNKNOWN INDICATION
     Dosage: ONCE A DAY, FOR ONE DAY
  2. DRAMAMINE [Suspect]
     Indication: DRUG USE FOR UNKNOWN INDICATION

REACTIONS (2)
  - DIZZINESS [None]
  - NERVOUSNESS [None]
